FAERS Safety Report 14138720 (Version 1)
Quarter: 2017Q4

REPORT INFORMATION
  Report Type: Report from Study
  Country: US (occurrence: US)
  Receive Date: 20171027
  Receipt Date: 20171027
  Transmission Date: 20180321
  Serious: No
  Sender: FDA-Public Use
  Company Number: US-ALEXION PHARMACEUTICALS INC.-A201711727

PATIENT
  Age: 38 Year
  Sex: Male

DRUGS (2)
  1. SOLIRIS [Suspect]
     Active Substance: ECULIZUMAB
     Indication: PAROXYSMAL NOCTURNAL HAEMOGLOBINURIA
     Dosage: UNK
     Route: 065
  2. SOLIRIS [Suspect]
     Active Substance: ECULIZUMAB
     Dosage: 900 MG, UNK
     Route: 065
     Dates: start: 20170922

REACTIONS (23)
  - Loss of personal independence in daily activities [Unknown]
  - Mean cell volume increased [Unknown]
  - Red cell distribution width increased [Unknown]
  - Haemoglobin decreased [Unknown]
  - Haematocrit decreased [Unknown]
  - Mean cell haemoglobin increased [Unknown]
  - Abdominal pain [Unknown]
  - Intravascular haemolysis [Unknown]
  - Haemoglobinuria [Unknown]
  - Mean platelet volume decreased [Unknown]
  - Red blood cell morphology abnormal [Unknown]
  - Red blood cell count decreased [Unknown]
  - Neutrophil count decreased [Unknown]
  - Anisocytosis [Unknown]
  - White blood cell count decreased [Unknown]
  - Blood lactate dehydrogenase increased [Unknown]
  - Fatigue [Unknown]
  - Reticulocyte count increased [Unknown]
  - Lymphocyte count increased [Unknown]
  - Microcytosis [Unknown]
  - Polychromasia [Unknown]
  - Anaemia [Unknown]
  - Jaundice [Unknown]

NARRATIVE: CASE EVENT DATE: 20170908
